FAERS Safety Report 5411637-5 (Version None)
Quarter: 2007Q3

REPORT INFORMATION
  Report Type: 
  Country: None (occurrence: None)
  Receive Date: 20070810
  Receipt Date: 20070731
  Transmission Date: 20080115
  Serious: Yes (Death)
  Sender: FDA-Public Use
  Company Number: NO-PFIZER INC-2007064227

PATIENT
  Sex: Female
  Weight: 65 kg

DRUGS (1)
  1. CYTOTEC [Suspect]
     Indication: INDUCED LABOUR
     Route: 067

REACTIONS (1)
  - ANAPHYLACTOID SYNDROME OF PREGNANCY [None]
